FAERS Safety Report 11413235 (Version 2)
Quarter: 2015Q3

REPORT INFORMATION
  Report Type: Spontaneous
  Country: None (occurrence: DK)
  Receive Date: 20150824
  Receipt Date: 20150825
  Transmission Date: 20151125
  Serious: Yes (Disabling)
  Sender: FDA-Public Use
  Company Number: DK-MERCK KGAA-1041317

PATIENT

DRUGS (1)
  1. NOVOTHYROX [Suspect]
     Active Substance: LEVOTHYROXINE SODIUM

REACTIONS (6)
  - Reaction to drug excipients [None]
  - Fatigue [None]
  - Feeling abnormal [None]
  - Malabsorption [None]
  - Abdominal discomfort [None]
  - Lethargy [None]
